FAERS Safety Report 5785611-3 (Version None)
Quarter: 2008Q2

REPORT INFORMATION
  Report Type: 
  Country: None (occurrence: None)
  Receive Date: 20080605
  Receipt Date: 20080221
  Transmission Date: 20081010
  Serious: No
  Sender: FDA-Public Use
  Company Number: A0710926A

PATIENT
  Age: 40 Year
  Sex: Female

DRUGS (3)
  1. ALLI [Suspect]
     Route: 048
  2. LIFE BRAND MULTIVITAMINS [Concomitant]
  3. CENTRUM MULTIVITAMINS [Concomitant]

REACTIONS (3)
  - DIARRHOEA [None]
  - DRUG INEFFECTIVE [None]
  - RECTAL DISCHARGE [None]
